FAERS Safety Report 9518307 (Version 1)
Quarter: 2013Q3

REPORT INFORMATION
  Report Type: Spontaneous
  Country: IN (occurrence: None)
  Receive Date: 20130910
  Receipt Date: 20130910
  Transmission Date: 20140515
  Serious: Yes (Hospitalization)
  Sender: FDA-Public Use
  Company Number: IN-MACLEODS PHARMA-000131

PATIENT
  Age: 53 Year
  Sex: Female

DRUGS (4)
  1. PANTOPRAZOLE [Suspect]
     Indication: NAUSEA
  2. PYRAZINAMIDE(PYRAZINAMIDE) [Concomitant]
  3. RIFAMPICIN(RIFAMPICIN) [Concomitant]
  4. ISONIAZIDE(ISONIAZIDE) [Concomitant]

REACTIONS (5)
  - Tubulointerstitial nephritis [None]
  - Vomiting [None]
  - Back pain [None]
  - Oliguria [None]
  - Malaise [None]
